FAERS Safety Report 10510701 (Version 1)
Quarter: 2014Q3

REPORT INFORMATION
  Report Type: Spontaneous
  Country: US (occurrence: None)
  Receive Date: 20140915
  Receipt Date: 20140915
  Transmission Date: 20150326
  Serious: Yes (Other)
  Sender: FDA-Public Use
  Company Number: 2013-US-002382

PATIENT
  Age: 57 Year
  Sex: Female
  Weight: 79.4 kg

DRUGS (3)
  1. XYREM [Suspect]
     Active Substance: SODIUM OXYBATE
     Indication: NARCOLEPSY
     Route: 048
     Dates: start: 201305, end: 2013
  2. MODAFINIL (MODAFINIL) [Suspect]
     Active Substance: MODAFINIL
     Indication: SOMNOLENCE
  3. XYREM [Suspect]
     Active Substance: SODIUM OXYBATE
     Indication: CATAPLEXY
     Route: 048
     Dates: start: 201305, end: 2013

REACTIONS (8)
  - Depression [None]
  - Sjogren^s syndrome [None]
  - Oedema peripheral [None]
  - Condition aggravated [None]
  - Intentional product misuse [None]
  - Therapeutic response changed [None]
  - Antinuclear antibody positive [None]
  - Weight decreased [None]

NARRATIVE: CASE EVENT DATE: 201305
